FAERS Safety Report 10480648 (Version 1)
Quarter: 2014Q3

REPORT INFORMATION
  Report Type: Spontaneous
  Country: US (occurrence: None)
  Receive Date: 20140904
  Receipt Date: 20140904
  Transmission Date: 20150326
  Serious: No
  Sender: FDA-Public Use
  Company Number: 228158

PATIENT
  Age: 43 Year
  Sex: Female

DRUGS (2)
  1. LOSARTAN (LOSARTAN) [Concomitant]
     Active Substance: LOSARTAN
  2. PICATO [Suspect]
     Active Substance: INGENOL MEBUTATE
     Indication: ACTINIC KERATOSIS
     Dosage: (ONCE DAILY FOR THREE DAYS), TOPICAL??EXP. DATE 13/15
     Route: 061
     Dates: start: 20140605, end: 20140606

REACTIONS (5)
  - Application site haemorrhage [None]
  - Application site erythema [None]
  - Incorrect drug administration duration [None]
  - Application site vesicles [None]
  - Blister rupture [None]

NARRATIVE: CASE EVENT DATE: 20140607
